FAERS Safety Report 15089819 (Version 4)
Quarter: 2019Q1

REPORT INFORMATION
  Report Type: Report from Study
  Country: CN (occurrence: CN)
  Receive Date: 20180629
  Receipt Date: 20190103
  Transmission Date: 20190417
  Serious: Yes (Hospitalization)
  Sender: FDA-Public Use
  Company Number: CN-ROCHE-2145562

PATIENT
  Age: 66 Year
  Sex: Female
  Weight: 75 kg

DRUGS (30)
  1. TROPISETRON [Concomitant]
     Active Substance: TROPISETRON
     Indication: VOMITING
     Route: 065
     Dates: start: 20180516, end: 20180524
  2. LENTINAN [Concomitant]
     Active Substance: LENTINAN
     Indication: ADJUVANT THERAPY
     Route: 065
     Dates: start: 20180516, end: 20180524
  3. OMEPRAZOLE. [Concomitant]
     Active Substance: OMEPRAZOLE
     Dosage: PROTECT THE STOMACH
     Route: 065
     Dates: start: 20180516, end: 20180524
  4. ASTRAGALUS [Concomitant]
     Indication: LEUKOPENIA
     Route: 065
     Dates: start: 20180625, end: 20180627
  5. GLUCOSE + SALINE [Concomitant]
     Route: 065
     Dates: start: 20180622, end: 20180627
  6. FALLOPIA MULTIFLORA [Concomitant]
     Indication: LEUKOPENIA
     Route: 065
     Dates: start: 20180625, end: 20180627
  7. MULBERRY [Concomitant]
     Active Substance: BROUSSONETIA PAPYRIFERA POLLEN
     Indication: LEUKOPENIA
     Route: 065
     Dates: start: 20180625, end: 20180627
  8. GARDEN BURNET ROOT [Concomitant]
     Indication: LEUKOPENIA
     Route: 065
     Dates: start: 20180416, end: 20180825
  9. GARDEN BURNET ROOT [Concomitant]
     Indication: GRANULOCYTOPENIA
  10. FILGRASTIM [Concomitant]
     Active Substance: FILGRASTIM
     Indication: GRANULOCYTOPENIA
     Route: 065
     Dates: start: 20180622, end: 20180625
  11. TREE PEONY BARK [Concomitant]
     Indication: THROMBOCYTOPENIA
     Route: 065
     Dates: start: 20180503, end: 20180826
  12. CIBOTII RHIZOMA [Concomitant]
     Indication: LEUKOPENIA
     Route: 065
     Dates: start: 20180625, end: 20180627
  13. ATEZOLIZUMAB. [Suspect]
     Active Substance: ATEZOLIZUMAB
     Indication: NON-SMALL CELL LUNG CANCER
     Dosage: MOST RECENT DOSE OF ATEZOLIZUMAB PRIOR TO EVENT ONSET WAS ON 06/JUN/2018
     Route: 042
     Dates: start: 20180606
  14. OLANZAPINE. [Concomitant]
     Active Substance: OLANZAPINE
     Route: 065
     Dates: start: 20180512
  15. FILGRASTIM [Concomitant]
     Active Substance: FILGRASTIM
     Route: 065
     Dates: start: 20180705, end: 20180706
  16. SODIUM DEOXYRIBONUCLEOTIDE [Concomitant]
     Route: 065
     Dates: start: 20180622, end: 20180627
  17. METOCLOPRAMIDE. [Concomitant]
     Active Substance: METOCLOPRAMIDE
     Route: 065
     Dates: start: 20180627, end: 20180627
  18. INVERT SUGAR [Concomitant]
     Active Substance: INVERT SUGAR
     Dosage: INVERT SUGAR AND ELECTROLYTES
     Route: 065
     Dates: start: 20180622, end: 20180627
  19. CISPLATIN. [Suspect]
     Active Substance: CISPLATIN
     Indication: NON-SMALL CELL LUNG CANCER
     Dosage: MOST RECENT DOSE OF CISPLATIN 100 MG PRIOR TO EVENT ONSET WAS ON 11/MAY/2018
     Route: 042
     Dates: start: 20180308
  20. DOCETAXEL. [Suspect]
     Active Substance: DOCETAXEL
     Indication: NON-SMALL CELL LUNG CANCER
     Dosage: MOST RECENT DOSE OF DOCETAXEL 100 MG PRIOR TO EVENT ONSET WAS ON 11/MAY/2018
     Route: 042
     Dates: start: 20180308
  21. SODIUM DEOXYRIBONUCLEOTIDE [Concomitant]
     Dosage: COMPENSATORY NUTRITION
     Route: 065
     Dates: start: 20180515, end: 20180524
  22. LENTINAN [Concomitant]
     Active Substance: LENTINAN
     Route: 065
     Dates: start: 20180622, end: 20180627
  23. FILGRASTIM [Concomitant]
     Active Substance: FILGRASTIM
     Route: 065
     Dates: start: 20180606, end: 20180606
  24. PANTOPRAZOLE SODIUM. [Concomitant]
     Active Substance: PANTOPRAZOLE SODIUM
     Route: 065
     Dates: start: 20180622, end: 20180627
  25. PAEONIAE ALBA [Concomitant]
     Indication: LEUKOPENIA
     Route: 065
     Dates: start: 20180625, end: 20180627
  26. FILGRASTIM [Concomitant]
     Active Substance: FILGRASTIM
     Indication: LEUKOPENIA
     Route: 065
     Dates: start: 20180519, end: 20180524
  27. METOCLOPRAMIDE. [Concomitant]
     Active Substance: METOCLOPRAMIDE
     Indication: VOMITING
     Route: 065
     Dates: start: 20180623, end: 20180623
  28. GLOSSY PRIVET FRUIT [Concomitant]
     Indication: LEUKOPENIA
     Route: 065
     Dates: start: 20180625, end: 20180627
  29. RECOMBINANT HUMAN INTERLEUKIN-11 [Concomitant]
     Active Substance: OPRELVEKIN
     Indication: THROMBOCYTOPENIA
     Route: 065
     Dates: start: 20180622, end: 20180627
  30. RADIX REHMANNIAE [Concomitant]
     Indication: THROMBOCYTOPENIA
     Route: 065
     Dates: start: 20180503, end: 20180826

REACTIONS (1)
  - Platelet count decreased [Recovered/Resolved]

NARRATIVE: CASE EVENT DATE: 20180622
